FAERS Safety Report 5212261-X (Version None)
Quarter: 2007Q1

REPORT INFORMATION
  Report Type: 
  Country: None (occurrence: None)
  Receive Date: 20070118
  Receipt Date: 20070112
  Transmission Date: 20070707
  Serious: Yes (Other)
  Sender: FDA-Public Use
  Company Number: ES-ROXANE LABORATORIES, INC-2007-DE-00240GD

PATIENT
  Age: 64 Year
  Sex: Female

DRUGS (5)
  1. METAMIZOLE [Suspect]
  2. CLARITHROMYCIN [Suspect]
     Indication: PNEUMONIA
  3. AMOXICILLIN/CLAVULANIC ACID [Suspect]
  4. DESIPRAMINE HCL [Concomitant]
  5. PREDNISOLONE [Concomitant]

REACTIONS (3)
  - GRANULOCYTOPENIA [None]
  - HEPATIC ENZYME DECREASED [None]
  - PYREXIA [None]
